FAERS Safety Report 8268680-0 (Version None)
Quarter: 2012Q2

REPORT INFORMATION
  Report Type: 
  Country: None (occurrence: None)
  Receive Date: 20120409
  Receipt Date: 20120405
  Transmission Date: 20120825
  Serious: Yes (Other)
  Sender: FDA-Public Use
  Company Number: US-PFIZER INC-2012086738

PATIENT
  Sex: Female
  Weight: 72.6 kg

DRUGS (3)
  1. TYLENOL (CAPLET) [Concomitant]
     Dosage: UNK
  2. WARFARIN [Concomitant]
     Dosage: 5 MG, UNK
  3. CELEBREX [Suspect]
     Indication: ARTHRITIS
     Dosage: UNK, 1X/DAY
     Dates: start: 20000101, end: 20070101

REACTIONS (2)
  - CEREBROVASCULAR ACCIDENT [None]
  - HYPERTENSION [None]
